FAERS Safety Report 5808957-9 (Version None)
Quarter: 2008Q3

REPORT INFORMATION
  Report Type: 
  Country: None (occurrence: None)
  Receive Date: 20080710
  Receipt Date: 20080710
  Transmission Date: 20090109
  Serious: No
  Sender: FDA-Public Use
  Company Number: None

PATIENT
  Age: 55 Year
  Sex: Female
  Weight: 123.3784 kg

DRUGS (2)
  1. LEVAQUIN [Suspect]
     Indication: EAR INFECTION
     Dosage: 750 MG ONCE DAILY X 7 DAY
     Dates: start: 20080701, end: 20080708
  2. LEVAQUIN [Suspect]
     Indication: SINUSITIS
     Dosage: 750 MG ONCE DAILY X 7 DAY
     Dates: start: 20080701, end: 20080708

REACTIONS (5)
  - HYPOAESTHESIA [None]
  - PAIN [None]
  - SWELLING [None]
  - TENDERNESS [None]
  - TENDON PAIN [None]
